FAERS Safety Report 6568471-2 (Version None)
Quarter: 2010Q1

REPORT INFORMATION
  Report Type: 
  Country: None (occurrence: None)
  Receive Date: 20100203
  Receipt Date: 20100127
  Transmission Date: 20100710
  Serious: Yes (Disabling)
  Sender: FDA-Public Use
  Company Number: B0387535A

PATIENT
  Sex: Male
  Weight: 76.4 kg

DRUGS (3)
  1. REQUIP [Suspect]
     Indication: PARKINSON'S DISEASE
     Dosage: 3MG PER DAY
     Route: 048
     Dates: start: 20050612, end: 20050712
  2. MADOPAR [Concomitant]
     Dosage: 125MG THREE TIMES PER DAY
     Route: 048
  3. FLOMAX [Concomitant]
     Route: 065

REACTIONS (2)
  - SOMNOLENCE [None]
  - SUDDEN ONSET OF SLEEP [None]
